FAERS Safety Report 9336518 (Version 1)
Quarter: 2013Q2

REPORT INFORMATION
  Report Type: Spontaneous
  Country: US (occurrence: US)
  Receive Date: 20130607
  Receipt Date: 20130607
  Transmission Date: 20140414
  Serious: No
  Sender: FDA-Public Use
  Company Number: US-PFIZER INC-2013170132

PATIENT
  Age: 80 Year
  Sex: Female

DRUGS (9)
  1. NORVASC [Suspect]
     Dosage: UNK
  2. CARVEDILOL [Suspect]
     Dosage: UNK
  3. CODEINE [Suspect]
     Dosage: UNK
  4. FLECAINIDE ACETATE [Suspect]
     Dosage: UNK
  5. TETRACYCLINE HCL [Suspect]
     Dosage: UNK
  6. FOSAMAX [Suspect]
     Dosage: UNK
  7. ACTONEL [Suspect]
     Dosage: UNK
  8. AUGMENTIN [Suspect]
     Dosage: UNK
  9. MEPERIDINE [Suspect]
     Dosage: UNK

REACTIONS (1)
  - Drug hypersensitivity [Unknown]
